FAERS Safety Report 4653485-X (Version None)
Quarter: 2005Q2

REPORT INFORMATION
  Report Type: 
  Country: None (occurrence: None)
  Receive Date: 20050503
  Receipt Date: 20050422
  Transmission Date: 20051028
  Serious: Yes (Hospitalization)
  Sender: FDA-Public Use
  Company Number: CH-SHR-03-011880

PATIENT
  Age: 24 Year
  Sex: Female
  Weight: 79 kg

DRUGS (1)
  1. MIRENA [Suspect]
     Indication: CONTRACEPTION
     Dosage: 20 UG, CONT, INTRA-UTERINE
     Route: 015

REACTIONS (6)
  - DRUG EXPOSURE DURING PREGNANCY [None]
  - INTRA-UTERINE CONTRACEPTIVE DEVICE EXPELLED [None]
  - MENTAL DISORDER [None]
  - OLIGOHYDRAMNIOS [None]
  - PREGNANCY WITH CONTRACEPTIVE DEVICE [None]
  - PREMATURE RUPTURE OF MEMBRANES [None]
